FAERS Safety Report 4362665-2 (Version None)
Quarter: 2004Q2

REPORT INFORMATION
  Report Type: 
  Country: None (occurrence: None)
  Receive Date: 20040524
  Receipt Date: 20040514
  Transmission Date: 20050107
  Serious: Yes (Hospitalization)
  Sender: FDA-Public Use
  Company Number: 200411978FR

PATIENT
  Age: 63 Year
  Sex: Female

DRUGS (10)
  1. LASILIX 40 MG [Suspect]
     Indication: HYPERTENSIVE CARDIOMYOPATHY
     Route: 048
     Dates: start: 20040101, end: 20040130
  2. TAREG [Suspect]
     Indication: HYPERTENSIVE CARDIOMYOPATHY
     Route: 048
     Dates: start: 20031215, end: 20040130
  3. ALDALIX [Suspect]
     Indication: HYPERTENSIVE CARDIOMYOPATHY
     Route: 048
     Dates: start: 20031215, end: 20040130
  4. EUPRESSYL [Concomitant]
     Dosage: DOSE UNIT: UNITS
     Route: 048
     Dates: start: 20031215, end: 20040130
  5. ZOVIRAX [Concomitant]
     Indication: MENINGITIS HERPES
     Route: 048
     Dates: start: 20040124, end: 20040127
  6. VISIPAQUE [Concomitant]
     Route: 030
     Dates: start: 20040129, end: 20040129
  7. TRANXENE [Concomitant]
     Route: 048
     Dates: start: 20030120, end: 20040130
  8. NOZINAN [Concomitant]
     Route: 048
     Dates: start: 20040122, end: 20040130
  9. DEPAKOTE [Concomitant]
     Route: 048
     Dates: start: 20040123
  10. SINTROM [Concomitant]
     Route: 048

REACTIONS (2)
  - DEHYDRATION [None]
  - RENAL FAILURE ACUTE [None]
